FAERS Safety Report 6022626-4 (Version None)
Quarter: 2008Q4

REPORT INFORMATION
  Report Type: 
  Country: None (occurrence: None)
  Receive Date: 20081230
  Receipt Date: 20081229
  Transmission Date: 20090506
  Serious: Yes (Other)
  Sender: FDA-Public Use
  Company Number: US-BAYER-200812870BCC

PATIENT
  Age: 76 Year
  Sex: Male
  Weight: 82 kg

DRUGS (1)
  1. ORIGINAL ALKA-SELTZER EFFERVESCENT TABLETS [Suspect]
     Indication: DYSPEPSIA
     Route: 048

REACTIONS (2)
  - DYSPEPSIA [None]
  - OESOPHAGEAL CARCINOMA [None]
